FAERS Safety Report 9341483 (Version 1)
Quarter: 2013Q2

REPORT INFORMATION
  Report Type: Spontaneous
  Country: US (occurrence: US)
  Receive Date: 20130611
  Receipt Date: 20130611
  Transmission Date: 20140414
  Serious: No
  Sender: FDA-Public Use
  Company Number: US-009507513-1306USA004046

PATIENT
  Sex: 0

DRUGS (3)
  1. JANUVIA [Suspect]
     Dosage: 100 MG, UNK
  2. METFORMIN [Concomitant]
     Dosage: UNK
  3. ASPIRIN [Concomitant]
     Dosage: UNK

REACTIONS (1)
  - Muscle spasms [Recovered/Resolved]
